APPROVED DRUG PRODUCT: NALOXONE HYDROCHLORIDE
Active Ingredient: NALOXONE HYDROCHLORIDE
Strength: 4MG/SPRAY
Dosage Form/Route: SPRAY, METERED;NASAL
Application: A211951 | Product #001
Applicant: PADAGIS ISRAEL PHARMACEUTICALS LTD
Approved: Jun 21, 2022 | RLD: No | RS: No | Type: OTC